FAERS Safety Report 8268933-6 (Version None)
Quarter: 2012Q2

REPORT INFORMATION
  Report Type: 
  Country: None (occurrence: None)
  Receive Date: 20120409
  Receipt Date: 20120402
  Transmission Date: 20120825
  Serious: Yes (Other)
  Sender: FDA-Public Use
  Company Number: US-US-EMD SERONO, INC.-230411J10USA

PATIENT
  Sex: Female

DRUGS (8)
  1. REBIF [Suspect]
  2. MOTRIN [Concomitant]
     Indication: PRODUCT USED FOR UNKNOWN INDICATION
  3. VITAMIN TAB [Concomitant]
     Indication: PRODUCT USED FOR UNKNOWN INDICATION
  4. FISH OIL [Concomitant]
     Indication: SUPPLEMENTATION THERAPY
  5. REBIF [Suspect]
     Indication: MULTIPLE SCLEROSIS
     Route: 058
     Dates: start: 20041228
  6. TYLENOL TAB [Concomitant]
     Indication: HEADACHE
  7. LEVOXYL [Concomitant]
     Indication: HYPOTHYROIDISM
  8. TYLENOL TAB [Concomitant]
     Indication: PREMEDICATION

REACTIONS (5)
  - GAIT DISTURBANCE [None]
  - FEELING ABNORMAL [None]
  - HYPOTHYROIDISM [None]
  - HYPOAESTHESIA [None]
  - SYNOVIAL CYST [None]
